FAERS Safety Report 24592121 (Version 2)
Quarter: 2024Q4

REPORT INFORMATION
  Report Type: Report from Study
  Country: BR (occurrence: BR)
  Receive Date: 20241108
  Receipt Date: 20241129
  Transmission Date: 20250114
  Serious: No
  Sender: BIOGEN
  Company Number: BR-BIOGEN-2024BI01289357

PATIENT
  Age: 34 Year
  Sex: Male
  Weight: 76 kg

DRUGS (3)
  1. TYSABRI [Suspect]
     Active Substance: NATALIZUMAB
     Indication: Multiple sclerosis
     Route: 050
     Dates: start: 2023
  2. REBIF [Concomitant]
     Active Substance: INTERFERON BETA-1A
     Indication: Product used for unknown indication
     Route: 050
  3. VITAMIN D [Concomitant]
     Active Substance: VITAMIN D NOS
     Indication: Product used for unknown indication
     Route: 050

REACTIONS (3)
  - Head injury [Not Recovered/Not Resolved]
  - Joint dislocation [Not Recovered/Not Resolved]
  - Accident [Not Recovered/Not Resolved]

NARRATIVE: CASE EVENT DATE: 20241001
